FAERS Safety Report 24181938 (Version 1)
Quarter: 2024Q3

REPORT INFORMATION
  Report Type: Spontaneous
  Country: US (occurrence: US)
  Receive Date: 20240807
  Receipt Date: 20240807
  Transmission Date: 20241016
  Serious: No
  Sender: CHIESI
  Company Number: US-CHIESI-2024CHF00359

PATIENT
  Sex: Female

DRUGS (2)
  1. KENGREAL [Suspect]
     Active Substance: CANGRELOR
     Indication: Carotid artery stent insertion
     Dosage: 15 MICROGRAM/KILOGRAM, (1X)
     Route: 040
  2. KENGREAL [Suspect]
     Active Substance: CANGRELOR
     Indication: Off label use
     Dosage: 2 MICROGRAM/KILOGRAM, (1X)
     Route: 042

REACTIONS (4)
  - Haematoma [Recovered/Resolved]
  - Off label use [Recovered/Resolved]
  - Off label use [Recovered/Resolved]
  - Off label use [Recovered/Resolved]
